FAERS Safety Report 9393382 (Version 1)
Quarter: 2013Q3

REPORT INFORMATION
  Report Type: Report from Study
  Country: TW (occurrence: TW)
  Receive Date: 20130710
  Receipt Date: 20130710
  Transmission Date: 20140515
  Serious: Yes (Other)
  Sender: FDA-Public Use
  Company Number: PHHO2013TW008869

PATIENT
  Age: 0 Day
  Sex: Female

DRUGS (1)
  1. ZOLEDRONATE [Suspect]
     Indication: BREAST CANCER
     Route: 064

REACTIONS (2)
  - Foetal distress syndrome [Unknown]
  - Foetal exposure during pregnancy [Unknown]
